FAERS Safety Report 4424902-5 (Version None)
Quarter: 2004Q3

REPORT INFORMATION
  Report Type: 
  Country: None (occurrence: None)
  Receive Date: 20040809
  Receipt Date: 20040727
  Transmission Date: 20050211
  Serious: Yes (Hospitalization)
  Sender: FDA-Public Use
  Company Number: HQWYE880523DEC03

PATIENT
  Age: 67 Year
  Sex: Female

DRUGS (2)
  1. GEMTUZUMAB OZOGAMICIN (GEMTUZUMAB, OZOGAMICIN, INJECTION) [Suspect]
     Indication: ACUTE MYELOID LEUKAEMIA
  2. ACETAMINOPHEN [Concomitant]

REACTIONS (3)
  - LEUKOPENIA [None]
  - THROMBOCYTOPENIA [None]
  - VENOOCCLUSIVE LIVER DISEASE [None]
